FAERS Safety Report 9149468 (Version 1)
Quarter: 2013Q1

REPORT INFORMATION
  Report Type: Spontaneous
  Country: None (occurrence: None)
  Receive Date: 20130131
  Receipt Date: 20130131
  Transmission Date: 20140127
  Serious: Yes (Other)
  Sender: FDA-Public Use
  Company Number: 2013SP001106

PATIENT
  Age: 60 Year
  Sex: Male

DRUGS (1)
  1. VANCOMYCIN [Suspect]
     Indication: ENTEROCOCCUS TEST POSITIVE

REACTIONS (5)
  - Infection [None]
  - Headache [None]
  - Meningitis enterococcal [None]
  - Osteomyelitis [None]
  - Wound infection [None]
